FAERS Safety Report 13757550 (Version 1)
Quarter: 2017Q3

REPORT INFORMATION
  Report Type: Spontaneous
  Country: US (occurrence: US)
  Receive Date: 20170717
  Receipt Date: 20170717
  Transmission Date: 20171127
  Serious: No
  Sender: FDA-Public Use
  Company Number: US-AUROBINDO-AUR-APL-2016-07457

PATIENT
  Sex: Male

DRUGS (1)
  1. CEFPROZIL TABLETS USP 500MG [Suspect]
     Active Substance: CEFPROZIL
     Indication: PROSTATITIS
     Dosage: 500 MG, TWO TIMES A DAY
     Route: 048

REACTIONS (1)
  - Dizziness [Not Recovered/Not Resolved]
